FAERS Safety Report 4962071-3 (Version None)
Quarter: 2006Q2

REPORT INFORMATION
  Report Type: 
  Country: None (occurrence: None)
  Receive Date: 20060404
  Receipt Date: 20030605
  Transmission Date: 20061013
  Serious: Yes (Hospitalization, Disabling, Other)
  Sender: FDA-Public Use
  Company Number: US-MERCK-0306USA00902

PATIENT
  Age: 45 Year
  Sex: Female
  Weight: 95 kg

DRUGS (8)
  1. VIOXX [Suspect]
     Indication: BACK PAIN
     Route: 048
     Dates: start: 20010128, end: 20020301
  2. VIOXX [Suspect]
     Route: 048
     Dates: start: 20020520, end: 20020620
  3. VIOXX [Suspect]
     Route: 048
     Dates: start: 20030610, end: 20030710
  4. ZYPREXA [Concomitant]
     Route: 065
  5. PAXIL [Concomitant]
     Route: 065
  6. XANAX [Concomitant]
     Route: 065
  7. WELLBUTRIN [Concomitant]
     Route: 065
  8. IBUPROFEN [Concomitant]
     Route: 065

REACTIONS (12)
  - ADVERSE EVENT [None]
  - ARRHYTHMIA [None]
  - BACK DISORDER [None]
  - CHEST PAIN [None]
  - DEPRESSION [None]
  - HYPERTENSION [None]
  - IMPAIRED WORK ABILITY [None]
  - INJURY [None]
  - OEDEMA [None]
  - OVERDOSE [None]
  - SUICIDAL IDEATION [None]
  - SURGERY [None]
